FAERS Safety Report 9371052 (Version 1)
Quarter: 2013Q2

REPORT INFORMATION
  Report Type: Spontaneous
  Country: US (occurrence: US)
  Receive Date: 20130627
  Receipt Date: 20130627
  Transmission Date: 20140414
  Serious: Yes (Hospitalization, Other)
  Sender: FDA-Public Use
  Company Number: US-B.I. PHARMACEUTICALS,INC./RIDGEFIELD-2013-BI-18018BP

PATIENT
  Age: 60 Year
  Sex: Female

DRUGS (11)
  1. MICARDIS [Suspect]
     Indication: HYPERTENSION
     Dosage: 80 MG
     Route: 048
     Dates: start: 2011
  2. XANAX [Concomitant]
     Route: 048
  3. LORTAB [Concomitant]
     Route: 048
  4. METOPROLOL [Concomitant]
     Dosage: 50 MG
     Route: 048
  5. METFORMIN [Concomitant]
     Indication: DIABETES MELLITUS
     Dosage: 500 MG
     Route: 048
  6. GLIPIZIDE [Concomitant]
     Indication: DIABETES MELLITUS
     Dosage: 20 MG
     Route: 048
  7. AMITRIPTYLINE [Concomitant]
     Route: 048
  8. SERTRALINE [Concomitant]
     Indication: DEPRESSION
     Dosage: 100 MG
     Route: 048
  9. CENTRUM SILVER [Concomitant]
     Route: 048
  10. LISINOPRIL [Concomitant]
     Dosage: 5 MG
     Route: 048
  11. LORATADINE [Concomitant]
     Dosage: 10 MG
     Route: 048

REACTIONS (4)
  - Breast cancer [Not Recovered/Not Resolved]
  - Ankle fracture [Recovered/Resolved]
  - Foot fracture [Recovered/Resolved]
  - Blood pressure decreased [Recovered/Resolved]
